FAERS Safety Report 5713926-3 (Version None)
Quarter: 2008Q2

REPORT INFORMATION
  Report Type: 
  Country: None (occurrence: None)
  Receive Date: 20080421
  Receipt Date: 20080421
  Transmission Date: 20081010
  Serious: Yes (Hospitalization, Other)
  Sender: FDA-Public Use
  Company Number: None

PATIENT
  Age: 36 Year
  Sex: Female
  Weight: 81.6475 kg

DRUGS (1)
  1. SINGULAIR [Suspect]
     Indication: ASTHMA
     Dosage: DAILY PO
     Route: 048
     Dates: start: 20070325, end: 20080329

REACTIONS (13)
  - ASTHMA [None]
  - CONDITION AGGRAVATED [None]
  - DEPRESSION [None]
  - DISTURBANCE IN ATTENTION [None]
  - EYE INFECTION [None]
  - FIBROMYALGIA [None]
  - HYSTERECTOMY [None]
  - IMPAIRED WORK ABILITY [None]
  - INSOMNIA [None]
  - KIDNEY INFECTION [None]
  - LACRIMATION INCREASED [None]
  - SEPSIS [None]
  - SUICIDAL IDEATION [None]
